FAERS Safety Report 20789820 (Version 1)
Quarter: 2022Q2

REPORT INFORMATION
  Report Type: Spontaneous
  Country: US (occurrence: None)
  Receive Date: 20220505
  Receipt Date: 20220505
  Transmission Date: 20220721
  Serious: Yes (Disabling)
  Sender: FDA-Public Use
  Company Number: None

PATIENT
  Age: 31 Year
  Sex: Female
  Weight: 51.75 kg

DRUGS (2)
  1. BUPRENORPHINE AND NALOXONE SUBLINGUAL FILM [Suspect]
     Active Substance: BUPRENORPHINE HYDROCHLORIDE\NALOXONE HYDROCHLORIDE
     Indication: Drug use disorder
     Dosage: OTHER QUANTITY : 3 STRIPS;?OTHER FREQUENCY : 2.5 PER DAY;?
     Route: 060
     Dates: start: 20190604
  2. B C POWDER [Concomitant]

REACTIONS (5)
  - Self esteem decreased [None]
  - Psychiatric symptom [None]
  - Toothache [None]
  - Tooth erosion [None]
  - Dental caries [None]

NARRATIVE: CASE EVENT DATE: 20190604
